FAERS Safety Report 10238141 (Version 1)
Quarter: 2014Q2

REPORT INFORMATION
  Report Type: Spontaneous
  Country: US (occurrence: None)
  Receive Date: 20140613
  Receipt Date: 20140613
  Transmission Date: 20141212
  Serious: Yes (Death, Hospitalization)
  Sender: FDA-Public Use
  Company Number: None

PATIENT
  Age: 18 Year
  Sex: Male
  Weight: 70.3 kg

DRUGS (4)
  1. MERCAPTOPURINE [Suspect]
     Dates: end: 20140604
  2. METHOTREXATE [Suspect]
     Dates: end: 20140604
  3. PREDNISONE [Suspect]
     Dates: end: 20140531
  4. VINCRISTINE SULFATE [Suspect]
     Dates: end: 20140527

REACTIONS (10)
  - Pancreatitis [None]
  - Hepatic failure [None]
  - Shock [None]
  - Renal failure [None]
  - Acute respiratory distress syndrome [None]
  - Hyperammonaemia [None]
  - Coagulopathy [None]
  - Disseminated intravascular coagulation [None]
  - Bradycardia [None]
  - Cardiac arrest [None]
